FAERS Safety Report 8190182 (Version 2)
Quarter: 2015Q2

REPORT INFORMATION
  Report Type: Spontaneous
  Country: US (occurrence: US)
  Receive Date: 20111019
  Receipt Date: 20150420
  Transmission Date: 20150821
  Serious: Yes (Other)
  Sender: FDA-Public Use
  Company Number: US-ROCHE-784709

PATIENT
  Sex: Male
  Weight: 84.9 kg

DRUGS (2)
  1. ACCUTANE [Suspect]
     Active Substance: ISOTRETINOIN
     Route: 065
     Dates: start: 200109, end: 200205
  2. ACCUTANE [Suspect]
     Active Substance: ISOTRETINOIN
     Indication: ACNE
     Route: 065
     Dates: start: 1997, end: 2000

REACTIONS (7)
  - Rectal haemorrhage [Unknown]
  - Colitis ulcerative [Unknown]
  - Emotional distress [Unknown]
  - Abdominal pain [Unknown]
  - Colon cancer [Unknown]
  - Bipolar disorder [Unknown]
  - Epistaxis [Unknown]

NARRATIVE: CASE EVENT DATE: 1999
